FAERS Safety Report 7264016-2 (Version None)
Quarter: 2011Q1

REPORT INFORMATION
  Report Type: 
  Country: None (occurrence: None)
  Receive Date: 20110130
  Receipt Date: 20101217
  Transmission Date: 20110831
  Serious: No
  Sender: FDA-Public Use
  Company Number: US-ABBOTT-10P-163-0692452-00

PATIENT
  Age: 47 Year
  Sex: Female

DRUGS (8)
  1. LYSINE [Concomitant]
     Indication: ORAL HERPES
  2. MULTI-VITAMIN [Concomitant]
     Indication: PRODUCT USED FOR UNKNOWN INDICATION
  3. FISH OIL [Concomitant]
     Indication: PRODUCT USED FOR UNKNOWN INDICATION
  4. HUMIRA [Suspect]
     Indication: CROHN'S DISEASE
     Dates: start: 20100910
  5. PROGESTERONE [Concomitant]
     Indication: HORMONE LEVEL ABNORMAL
     Dosage: 1/8 TSP, 2 IN DAY FOR 14 DAYS Q MONTH
  6. OREGNO OIL [Concomitant]
     Indication: ORAL HERPES
  7. CALCIUM W/MAGNESIUM/VITAMIN D [Concomitant]
     Indication: PRODUCT USED FOR UNKNOWN INDICATION
  8. MERCAPTOPURINE [Concomitant]
     Indication: CROHN'S DISEASE
     Dosage: AT NIGHT

REACTIONS (3)
  - ORAL HERPES [None]
  - DYSURIA [None]
  - URINARY TRACT INFECTION [None]
